FAERS Safety Report 24744975 (Version 1)
Quarter: 2024Q4

REPORT INFORMATION
  Report Type: Report from Study
  Country: US (occurrence: US)
  Receive Date: 20241217
  Receipt Date: 20241217
  Transmission Date: 20250114
  Serious: Yes (Hospitalization, Other)
  Sender: UCB
  Company Number: US-UCBSA-2024024009

PATIENT
  Sex: Male
  Weight: 22.2 kg

DRUGS (20)
  1. FINTEPLA [Suspect]
     Active Substance: FENFLURAMINE
     Indication: Severe myoclonic epilepsy of infancy
     Dosage: UNK
     Dates: start: 20240416
  2. FINTEPLA [Suspect]
     Active Substance: FENFLURAMINE
     Indication: Epilepsy
     Dosage: 2 MILLILITER, 2X/DAY (BID), G-TUBE
     Dates: start: 2024
  3. ZYRTEC [Suspect]
     Active Substance: CETIRIZINE HYDROCHLORIDE
     Indication: Product used for unknown indication
     Dosage: 5 MILLIGRAM, G TUBE, ONE TIME EACH DAY
  4. FYCOMPA [Concomitant]
     Active Substance: PERAMPANEL
     Indication: Product used for unknown indication
     Dosage: 2 MILLIGRAM, AT BED TIME
  5. DIACOMIT [Concomitant]
     Active Substance: STIRIPENTOL
     Indication: Seizure
     Dosage: 13 ML IN AM, 14 ML IN AFTERNOON AND 14 ML AT NIGHT
  6. ZONEGRAN [Concomitant]
     Active Substance: ZONISAMIDE
     Indication: Product used for unknown indication
     Dosage: 25 MILLIGRAM, 2X/DAY (BID)
  7. ALBUTEROL [Concomitant]
     Active Substance: ALBUTEROL
     Indication: Wheezing
     Dosage: TAKE 3ML (2.5 MG) EVERY 4 HOURS IF NEEDED
  8. PULMICORT TURBUHALER [Concomitant]
     Active Substance: BUDESONIDE
     Indication: Candida infection
     Dosage: 1 AMPULE BY NEBULIZATION, 2 TIMES A DAY
  9. VITAMIN D3 [Concomitant]
     Active Substance: CHOLECALCIFEROL
     Dosage: ROUTE: G-TUBE, ONCE DIALY
  10. DOXEPIN [Concomitant]
     Active Substance: DOXEPIN
     Indication: Product used for unknown indication
     Dosage: 5 MILLIGRAM, EVERY NIGHT
  11. TENEX [Concomitant]
     Active Substance: GUANFACINE HYDROCHLORIDE
     Indication: Product used for unknown indication
     Dosage: 0.5 ONE TIME BY MOUTH EACH DAY IN THE MORNING AND 1 MG EVERY NIGHT
  12. HYDROCORTISONE [Concomitant]
     Active Substance: HYDROCORTISONE
     Dosage: 1 APPLICATION, 2X/DAY (BID)
     Route: 061
  13. LEVOCARNITINE [Concomitant]
     Active Substance: LEVOCARNITINE
     Dosage: 5 MILLILITER, 2X/DAY (BID), G TUBE
  14. MELATONIN [Concomitant]
     Active Substance: MELATONIN
     Dosage: 6 MILLIGRAM, G-TUBE AT BED TIME
  15. MIDAZOLAM [Concomitant]
     Active Substance: MIDAZOLAM
     Dosage: UNK, AS NEEDED (PRN)
  16. PERAMPANEL [Concomitant]
     Active Substance: PERAMPANEL
     Dosage: 4 MILLIGRAM VIA G-TUBE NIGHTLY
  17. VITAMIN B6 [Concomitant]
     Active Substance: PYRIDOXINE HYDROCHLORIDE
  18. VENTOLIN HFA [Concomitant]
     Active Substance: ALBUTEROL SULFATE
  19. KLONOPIN [Concomitant]
     Active Substance: CLONAZEPAM
  20. FLOVENT HFA [Concomitant]
     Active Substance: FLUTICASONE PROPIONATE

REACTIONS (7)
  - Vagal nerve stimulator implantation [Not Recovered/Not Resolved]
  - Generalised tonic-clonic seizure [Unknown]
  - Seizure cluster [Unknown]
  - Anxiety [Not Recovered/Not Resolved]
  - Aggression [Not Recovered/Not Resolved]
  - Hot flush [Unknown]
  - Drug ineffective [Unknown]

NARRATIVE: CASE EVENT DATE: 20240101
